FAERS Safety Report 21894692 (Version 1)
Quarter: 2023Q1

REPORT INFORMATION
  Report Type: Spontaneous
  Country: US (occurrence: US)
  Receive Date: 20230122
  Receipt Date: 20230122
  Transmission Date: 20230418
  Serious: No
  Sender: FDA-Public Use
  Company Number: US-TEVA-2023-US-2846080

PATIENT

DRUGS (1)
  1. NABUMETONE [Suspect]
     Active Substance: NABUMETONE
     Indication: Sacroiliac joint dysfunction
     Dosage: STRENGTH: 500 MG
     Route: 065

REACTIONS (1)
  - Drug ineffective [Unknown]
